FAERS Safety Report 5148785-3 (Version None)
Quarter: 2006Q4

REPORT INFORMATION
  Report Type: 
  Country: None (occurrence: None)
  Receive Date: 20061107
  Receipt Date: 20061023
  Transmission Date: 20070319
  Serious: Yes (Other)
  Sender: FDA-Public Use
  Company Number: 30440

PATIENT
  Age: 74 Year
  Sex: Female

DRUGS (1)
  1. ALDARA [Suspect]
     Indication: BASAL CELL CARCINOMA
     Dosage: TOPICAL

REACTIONS (6)
  - APPLICATION SITE INFLAMMATION [None]
  - APPLICATION SITE ULCER [None]
  - LYMPHOCYTIC INFILTRATION [None]
  - LYMPHOPROLIFERATIVE DISORDER [None]
  - MYCOSIS FUNGOIDES [None]
  - PERIVASCULAR DERMATITIS [None]
